FAERS Safety Report 10609309 (Version 3)
Quarter: 2015Q1

REPORT INFORMATION
  Report Type: Report from Study
  Country: AR (occurrence: AR)
  Receive Date: 20141126
  Receipt Date: 20150123
  Transmission Date: 20150720
  Serious: Yes (Death, Other)
  Sender: FDA-Public Use
  Company Number: AR-BIOGENIDEC-2014BI121524

PATIENT
  Age: 64 Year
  Sex: Female

DRUGS (3)
  1. PHENYTOIN. [Concomitant]
     Active Substance: PHENYTOIN
     Dates: start: 2009
  2. AVONEX [Suspect]
     Active Substance: INTERFERON BETA-1A
     Indication: SECONDARY PROGRESSIVE MULTIPLE SCLEROSIS
     Route: 030
     Dates: start: 201308, end: 20141025
  3. AVONEX [Suspect]
     Active Substance: INTERFERON BETA-1A
     Indication: SECONDARY PROGRESSIVE MULTIPLE SCLEROSIS
     Route: 030
     Dates: start: 2001, end: 201308

REACTIONS (6)
  - Secondary progressive multiple sclerosis [Fatal]
  - Dysphagia [Unknown]
  - Gait disturbance [Unknown]
  - Product use issue [Unknown]
  - Seizure [Unknown]
  - Depression [Unknown]

NARRATIVE: CASE EVENT DATE: 201410
